FAERS Safety Report 7969648-1 (Version None)
Quarter: 2011Q4

REPORT INFORMATION
  Report Type: 
  Country: None (occurrence: None)
  Receive Date: 20111212
  Receipt Date: 20111130
  Transmission Date: 20120403
  Serious: Yes (Other)
  Sender: FDA-Public Use
  Company Number: AU-JNJFOC-20110904261

PATIENT
  Sex: Male

DRUGS (8)
  1. STELARA [Suspect]
     Route: 058
     Dates: start: 20100429
  2. STELARA [Suspect]
     Indication: PSORIASIS
     Route: 058
     Dates: start: 20110106
  3. STELARA [Suspect]
     Route: 058
     Dates: start: 20110915
  4. STELARA [Suspect]
     Route: 058
     Dates: start: 20110331
  5. STELARA [Suspect]
     Route: 058
     Dates: start: 20100722
  6. STELARA [Suspect]
     Route: 058
     Dates: start: 20101014
  7. STELARA [Suspect]
     Route: 058
     Dates: start: 20100401
  8. STELARA [Suspect]
     Route: 058
     Dates: start: 20110623

REACTIONS (2)
  - INFECTION [None]
  - PSORIASIS [None]
